FAERS Safety Report 16347068 (Version 1)
Quarter: 2019Q2

REPORT INFORMATION
  Report Type: Spontaneous
  Country: US (occurrence: US)
  Receive Date: 20190523
  Receipt Date: 20190523
  Transmission Date: 20190711
  Serious: No
  Sender: FDA-Public Use
  Company Number: US-TARO-2018TAR00515

PATIENT
  Age: 81 Year
  Sex: Female
  Weight: 68.03 kg

DRUGS (10)
  1. UNSPECIFIED EYE SUPPLEMENT [Concomitant]
  2. IMIQUIMOD CREAM 5% [Suspect]
     Active Substance: IMIQUIMOD
     Dosage: 12.5 MG, 3X/WEEK
     Route: 061
     Dates: start: 20180706
  3. UNSPECIFIED MULTIVITAMIN [Concomitant]
  4. IMIQUIMOD CREAM 5% [Suspect]
     Active Substance: IMIQUIMOD
     Dosage: 12.5 MG, ONCE TO THE CHEST
     Route: 061
     Dates: start: 20180702, end: 20180702
  5. IMIQUIMOD CREAM 5% [Suspect]
     Active Substance: IMIQUIMOD
     Dosage: 25 MG, ONCE TO THE CHEST
     Route: 061
     Dates: start: 20180704, end: 20180704
  6. AMLODIPINE [Concomitant]
     Active Substance: AMLODIPINE BESYLATE
  7. IMIQUIMOD CREAM 5% [Suspect]
     Active Substance: IMIQUIMOD
     Indication: PRECANCEROUS SKIN LESION
     Dosage: 12.5 MG, 3X/WEEK AT NIGHT TO THE FACE
     Route: 061
     Dates: start: 20180604, end: 20180701
  8. LEVOTHYROXINE. [Concomitant]
     Active Substance: LEVOTHYROXINE
  9. LOSARTAN. [Concomitant]
     Active Substance: LOSARTAN
  10. PRAVASTATIN. [Concomitant]
     Active Substance: PRAVASTATIN

REACTIONS (4)
  - Inappropriate schedule of product administration [Not Recovered/Not Resolved]
  - Arthralgia [Recovering/Resolving]
  - Myalgia [Not Recovered/Not Resolved]
  - Joint swelling [Recovering/Resolving]

NARRATIVE: CASE EVENT DATE: 20180604
